FAERS Safety Report 6243977-4 (Version None)
Quarter: 2009Q2

REPORT INFORMATION
  Report Type: 
  Country: None (occurrence: None)
  Receive Date: 20090623
  Receipt Date: 20090610
  Transmission Date: 20091009
  Serious: Yes (Hospitalization)
  Sender: FDA-Public Use
  Company Number: 8047709

PATIENT
  Sex: Female
  Weight: 70.76 kg

DRUGS (12)
  1. KEPPRA [Suspect]
     Indication: CONVULSION
     Dosage: 1000 MG 2/D PO
     Route: 048
     Dates: start: 20080101, end: 20090422
  2. ALBUTEROL [Concomitant]
  3. ASPIRIN [Concomitant]
  4. OXAPROZIN [Concomitant]
  5. DILANTIN [Concomitant]
  6. METOPROLOL TARTRATE [Concomitant]
  7. REMERON [Concomitant]
  8. PLAVIX [Concomitant]
  9. POTASSIUM CHLORIDE [Concomitant]
  10. PRAVASTATIN SODIUM [Concomitant]
  11. ZESTRIL [Concomitant]
  12. EFFEXOR [Concomitant]

REACTIONS (3)
  - CONTUSION [None]
  - CONVULSION [None]
  - MASS [None]
